FAERS Safety Report 16706998 (Version 2)
Quarter: 2019Q3

REPORT INFORMATION
  Report Type: Report from Study
  Country: NL (occurrence: NL)
  Receive Date: 20190815
  Receipt Date: 20190817
  Transmission Date: 20191004
  Serious: Yes (Death, Life-Threatening)
  Sender: FDA-Public Use
  Company Number: NL-AMGEN-NLDCT2019123001

PATIENT
  Age: 48 Year
  Sex: Male

DRUGS (2)
  1. CARFILZOMIB [Suspect]
     Active Substance: CARFILZOMIB
     Indication: PLASMA CELL MYELOMA
     Dosage: UNK UNK, PER CHEMO REGIM
     Route: 065
  2. POMALIDOMIDE [Suspect]
     Active Substance: POMALIDOMIDE
     Indication: PLASMA CELL MYELOMA
     Dosage: 4 MILLIGRAM, PER CHEMO REGIM
     Route: 065
     Dates: start: 20180604

REACTIONS (3)
  - Disease progression [Fatal]
  - Caudal regression syndrome [Not Recovered/Not Resolved]
  - Hypercalcaemia [Fatal]

NARRATIVE: CASE EVENT DATE: 20190626
